FAERS Safety Report 9465886 (Version 1)
Quarter: 2013Q3

REPORT INFORMATION
  Report Type: Report from Study
  Country: US (occurrence: US)
  Receive Date: 20130820
  Receipt Date: 20130820
  Transmission Date: 20140515
  Serious: Yes (Hospitalization, Other)
  Sender: FDA-Public Use
  Company Number: US-ASTELLAS-2013US008657

PATIENT
  Age: 54 Year
  Sex: Female

DRUGS (13)
  1. ERLOTINIB TABLET [Suspect]
     Indication: NON-SMALL CELL LUNG CANCER
     Dosage: 150 MG, UID/QD
     Route: 048
     Dates: start: 20070326
  2. ERLOTINIB TABLET [Suspect]
     Indication: METASTASES TO CENTRAL NERVOUS SYSTEM
  3. AMLODIPINE [Concomitant]
     Indication: PRODUCT USED FOR UNKNOWN INDICATION
     Dosage: 5 MG, UNKNOWN/D
     Route: 048
  4. LORATADIN [Concomitant]
     Indication: PRODUCT USED FOR UNKNOWN INDICATION
     Dosage: 10 MG, UNKNOWN/D
     Route: 048
  5. AZITHROMYCIN [Concomitant]
     Indication: PRODUCT USED FOR UNKNOWN INDICATION
     Dosage: 250 MG, UNKNOWN/D
     Route: 048
  6. ALBUTEROL SULFATE [Concomitant]
     Indication: PRODUCT USED FOR UNKNOWN INDICATION
     Dosage: UNK
     Route: 055
  7. LABETALOL HCL [Concomitant]
     Indication: PRODUCT USED FOR UNKNOWN INDICATION
     Dosage: 100 MG, UNKNOWN/D
     Route: 048
  8. PLAVIX [Concomitant]
     Indication: PRODUCT USED FOR UNKNOWN INDICATION
     Dosage: 75 MG, UNKNOWN/D
     Route: 048
  9. LEVETIRACETAM [Concomitant]
     Indication: PRODUCT USED FOR UNKNOWN INDICATION
     Dosage: 500 MG, UNKNOWN/D
     Route: 048
  10. PERMETHRIN [Concomitant]
     Indication: PRODUCT USED FOR UNKNOWN INDICATION
     Dosage: 5 %, UNKNOWN/D
     Route: 061
  11. MINOCYCLINE [Concomitant]
     Indication: PRODUCT USED FOR UNKNOWN INDICATION
     Dosage: 100 MG, UNKNOWN/D
     Route: 048
  12. HYDROCODONE/ACETAMINOPHEN          /00607101/ [Concomitant]
     Indication: PRODUCT USED FOR UNKNOWN INDICATION
     Dosage: 10/500 MG
     Route: 048
  13. PROAIR                             /00139502/ [Concomitant]
     Indication: PRODUCT USED FOR UNKNOWN INDICATION
     Dosage: UNK
     Route: 055

REACTIONS (24)
  - Adrenal disorder [Unknown]
  - Diabetes mellitus [Unknown]
  - Convulsion [Unknown]
  - Angina pectoris [Unknown]
  - Ischaemic stroke [Unknown]
  - Hypertension [Unknown]
  - Insomnia [Unknown]
  - Gastric disorder [Unknown]
  - Odynophagia [Unknown]
  - Dysphagia [Unknown]
  - Hepatic steatosis [Unknown]
  - Pain [Unknown]
  - Acarodermatitis [Unknown]
  - Body tinea [Unknown]
  - Rhinitis allergic [Unknown]
  - Pain in extremity [Unknown]
  - Rosacea [Unknown]
  - Acne [Unknown]
  - Upper respiratory tract infection [Unknown]
  - Back pain [Unknown]
  - Rash [Unknown]
  - Rash [Unknown]
  - Conjunctivitis [Unknown]
  - Gastritis [Unknown]
